FAERS Safety Report 7928023-6 (Version None)
Quarter: 2011Q4

REPORT INFORMATION
  Report Type: 
  Country: None (occurrence: None)
  Receive Date: 20111118
  Receipt Date: 20111114
  Transmission Date: 20120403
  Serious: Yes (Other)
  Sender: FDA-Public Use
  Company Number: US-AMGEN-USASP2011059925

PATIENT
  Age: 41 Year
  Sex: Female

DRUGS (2)
  1. REMICADE [Concomitant]
  2. ENBREL [Suspect]
     Indication: RHEUMATOID ARTHRITIS
     Dosage: 50 MG, QWK
     Dates: start: 20020101, end: 20110601

REACTIONS (6)
  - HEART RATE ABNORMAL [None]
  - ALOPECIA [None]
  - PRURITUS GENERALISED [None]
  - THERAPEUTIC RESPONSE DECREASED [None]
  - HAND DEFORMITY [None]
  - HYPERTENSION [None]
